FAERS Safety Report 23566545 (Version 2)
Quarter: 2025Q1

REPORT INFORMATION
  Report Type: Report from Study
  Country: US (occurrence: US)
  Receive Date: 20240226
  Receipt Date: 20250214
  Transmission Date: 20250408
  Serious: No
  Sender: AMNEAL
  Company Number: US-AMNEAL PHARMACEUTICALS-2023-AMRX-00520

PATIENT
  Age: 80 Year
  Sex: Female

DRUGS (14)
  1. CARBIDOPA\LEVODOPA [Suspect]
     Active Substance: CARBIDOPA\LEVODOPA
     Indication: Product used for unknown indication
     Dosage: 23.75-95 MG TAKE 3 CAPSULES BY MOUTH FOUR TIMES A DAY AT 8AM, 1PM, 6PM, AND 11PM
     Route: 048
  2. CARBIDOPA\LEVODOPA [Suspect]
     Active Substance: CARBIDOPA\LEVODOPA
     Dosage: 48.75-195 MG 2 CAPSULES BY MOUTH 4 TIMES A DAY
     Route: 048
  3. CARBIDOPA\LEVODOPA [Suspect]
     Active Substance: CARBIDOPA\LEVODOPA
     Dosage: 61.25-245 MG 2 CAPSULES 4 TIMES DAILY
     Route: 048
  4. CARBIDOPA\LEVODOPA [Suspect]
     Active Substance: CARBIDOPA\LEVODOPA
     Dosage: 48.75-195MG CAP DOSE - TAKE 1 CAPSULE BY MOUTH FOUR TIMES DAILY
     Route: 048
  5. CARBIDOPA\LEVODOPA [Suspect]
     Active Substance: CARBIDOPA\LEVODOPA
     Dosage: 61.25-245MG CAP DOSE ? TAKE 1 CAPSULE BY MOUTH FOUR TIMES DAILY EVERY 5 HOURS
     Route: 048
  6. CARBIDOPA\LEVODOPA [Suspect]
     Active Substance: CARBIDOPA\LEVODOPA
     Dosage: 61.25-245MG CAP DOSE ? TAKE 2 CAPSULE BY MOUTH FOUR TIMES DAILY EVERY 4-6 HOURS
     Route: 048
     Dates: start: 20230425
  7. CARBIDOPA\LEVODOPA [Suspect]
     Active Substance: CARBIDOPA\LEVODOPA
     Dosage: 61.25-245MG, 2 CAPSULES BY MOUTH 5 TIMES A DAY.EVERY 3.5 HOURS DURING THE DAY
     Route: 048
     Dates: start: 20231010
  8. CARBIDOPA\LEVODOPA [Suspect]
     Active Substance: CARBIDOPA\LEVODOPA
     Dosage: 48.75-195 MG TO TAKE 3 CAPSULES FIVE TIMES A DAY
     Route: 048
     Dates: start: 20240517
  9. CARBIDOPA\LEVODOPA [Suspect]
     Active Substance: CARBIDOPA\LEVODOPA
     Dosage: 2 CAPSULES, 4X/DAY
     Route: 048
     Dates: start: 20240521
  10. CARBIDOPA\LEVODOPA [Suspect]
     Active Substance: CARBIDOPA\LEVODOPA
     Dosage: 48.75-195 MG TO TAKE 2 CAPSULES FIVE TIMES A DAY
     Route: 048
     Dates: start: 20240528
  11. CARBIDOPA\LEVODOPA [Suspect]
     Active Substance: CARBIDOPA\LEVODOPA
     Dosage: 61.25-245MG, 2 CAPSULES, 5X/DAY
     Route: 048
     Dates: start: 20240529
  12. CARBIDOPA\LEVODOPA [Suspect]
     Active Substance: CARBIDOPA\LEVODOPA
     Route: 048
     Dates: start: 20240604
  13. ELIQUIS [Concomitant]
     Active Substance: APIXABAN
     Indication: Product used for unknown indication
     Route: 065
  14. HYDRALAZINE [Concomitant]
     Active Substance: HYDRALAZINE HYDROCHLORIDE
     Indication: Product used for unknown indication
     Route: 065

REACTIONS (7)
  - Alopecia [Unknown]
  - Rash [Unknown]
  - Dyspnoea [Unknown]
  - Eczema [Unknown]
  - Pruritus [Unknown]
  - Product use issue [Unknown]
  - Drug effect less than expected [Unknown]

NARRATIVE: CASE EVENT DATE: 20230302
